FAERS Safety Report 12817641 (Version 1)
Quarter: 2016Q4

REPORT INFORMATION
  Report Type: Report from Study
  Country: US (occurrence: US)
  Receive Date: 20161006
  Receipt Date: 20161006
  Transmission Date: 20170207
  Serious: Yes (Hospitalization, Other)
  Sender: FDA-Public Use
  Company Number: US-ROCHE-1339457

PATIENT
  Age: 62 Year
  Sex: Female
  Weight: 63 kg

DRUGS (10)
  1. CARBOPLATIN. [Suspect]
     Active Substance: CARBOPLATIN
     Indication: LUNG INFECTION
     Dosage: CYCLE:1, AUC=6, 30 MINUTES ON DAY1.
     Route: 042
     Dates: start: 20130829
  2. CARBOPLATIN. [Suspect]
     Active Substance: CARBOPLATIN
     Dosage: CYCLE 2-6: AUC = 6 IV OVER 30 MINS ON DAY 1?MOST RECENT DOSE RECEIVED: 26/DEC/2013, TOTAL DOSE= 304
     Route: 042
  3. BEVACIZUMAB [Suspect]
     Active Substance: BEVACIZUMAB
     Dosage: REVIEVED ON: 20/MAR/2014
     Route: 042
     Dates: start: 20140227
  4. BEVACIZUMAB [Suspect]
     Active Substance: BEVACIZUMAB
     Indication: OVARIAN EPITHELIAL CANCER
     Dosage: CYCLE 2-6: 15MG/KG IV OVER 30-90 MINS ON DAY 1?RECIEVED ON: 17/OCT/2013, 26/DEC/2013, 07/NOV/2013, 0
     Route: 042
     Dates: start: 20130829
  5. BEVACIZUMAB [Suspect]
     Active Substance: BEVACIZUMAB
     Route: 042
     Dates: start: 20140925
  6. VELIPARIB [Suspect]
     Active Substance: VELIPARIB
     Dosage: CYCLE2-6: DAYS 2-5?MOST RECENT DOSE RECEIVED: 30/DEC/2013, TOTAL DOSE: 4200 MG?RECIEVED ON : 26/DEC/
     Route: 048
  7. BEVACIZUMAB [Suspect]
     Active Substance: BEVACIZUMAB
     Route: 042
  8. PACLITAXEL. [Suspect]
     Active Substance: PACLITAXEL
     Dosage: CYCLES 2-6: 1 HR ON DAYS 1, 8, 15?MOST RECENT DOSE RECEIVED: 02/JAN/2014, TOTAL DOSE: 284 MG
     Route: 042
  9. VELIPARIB [Suspect]
     Active Substance: VELIPARIB
     Indication: LUNG INFECTION
     Dosage: CYCLE 1, DAYS 2-5
     Route: 048
     Dates: start: 20130829
  10. PACLITAXEL. [Suspect]
     Active Substance: PACLITAXEL
     Indication: LUNG INFECTION
     Dosage: CYCLE 1: OVER 1 HR, ON DAYS 1, 8, 15
     Route: 042
     Dates: start: 20130829

REACTIONS (15)
  - Device related infection [Recovered/Resolved]
  - Dehydration [Unknown]
  - Hypophosphataemia [Unknown]
  - Neutrophil count decreased [Unknown]
  - Anaemia [Unknown]
  - Decreased appetite [Unknown]
  - White blood cell count decreased [Unknown]
  - Hyperkalaemia [Unknown]
  - Hyponatraemia [Unknown]
  - Nausea [Unknown]
  - Lung infection [Recovered/Resolved]
  - Platelet count decreased [Unknown]
  - Embolism [Unknown]
  - Vomiting [Unknown]
  - Diarrhoea [Unknown]

NARRATIVE: CASE EVENT DATE: 20131226
